FAERS Safety Report 9179621 (Version 1)
Quarter: 2012Q4

REPORT INFORMATION
  Report Type: 
  Country: US (occurrence: US)
  Receive Date: 20121029
  Receipt Date: 20121029
  Transmission Date: 20130627
  Serious: Yes (Death)
  Sender: FDA-Public Use
  Company Number: US-GLAXOSMITHKLINE-A0998879A

PATIENT
  Age: 70 Year
  Sex: Male

DRUGS (8)
  1. PROMACTA [Suspect]
     Indication: PRODUCT USED FOR UNKNOWN INDICATION
     Dosage: 25MG Per day
     Route: 048
  2. LANSOPRAZOLE [Concomitant]
  3. SINGULAIR [Concomitant]
  4. SIMVASTATIN [Concomitant]
  5. IRON [Concomitant]
  6. VITAMIN D3 [Concomitant]
  7. CENTRUM [Concomitant]
  8. FLUTICASONE SPRAY [Concomitant]

REACTIONS (1)
  - Death [Fatal]
